FAERS Safety Report 18314142 (Version 1)
Quarter: 2020Q3

REPORT INFORMATION
  Report Type: Spontaneous
  Country: DE (occurrence: DE)
  Receive Date: 20200925
  Receipt Date: 20200925
  Transmission Date: 20201103
  Serious: Yes (Death, Other)
  Sender: FDA-Public Use
  Company Number: DE-ASTRAZENECA-2020SF22151

PATIENT
  Age: 47 Year
  Sex: Female

DRUGS (3)
  1. OLAPARIB. [Suspect]
     Active Substance: OLAPARIB
     Indication: INVASIVE BREAST CARCINOMA
     Dosage: 40 GY PLUS 10 GY IN THE BOOST RANGE 11?APRIL?2019 ? 13?MAY?2019
     Route: 048
  2. IBANDRONAT [Concomitant]
     Active Substance: IBANDRONATE SODIUM
  3. OLAPARIB. [Suspect]
     Active Substance: OLAPARIB
     Indication: INVASIVE BREAST CARCINOMA
     Route: 048
     Dates: start: 201903

REACTIONS (18)
  - Dizziness [Unknown]
  - Death [Fatal]
  - Metastases to meninges [Unknown]
  - Weight decreased [Unknown]
  - Slow speech [Unknown]
  - Hypoaesthesia [Unknown]
  - Disturbance in attention [Unknown]
  - Nausea [Not Recovered/Not Resolved]
  - Movement disorder [Unknown]
  - Saccadic eye movement [Unknown]
  - Psychomotor retardation [Unknown]
  - Off label use [Unknown]
  - Hypophagia [Unknown]
  - Pain [Unknown]
  - Somnolence [Unknown]
  - Fatigue [Unknown]
  - Fall [Unknown]
  - Condition aggravated [Unknown]
